FAERS Safety Report 6519735-X (Version None)
Quarter: 2009Q4

REPORT INFORMATION
  Report Type: 
  Country: None (occurrence: None)
  Receive Date: 20091228
  Receipt Date: 20091228
  Transmission Date: 20100525
  Serious: Yes (Other)
  Sender: FDA-Public Use
  Company Number: None

PATIENT
  Age: 7 Year
  Sex: Female
  Weight: 27.2158 kg

DRUGS (2)
  1. SINGULAIR [Suspect]
     Indication: DIZZINESS
     Dosage: 1 TAB Q DAY PO
     Route: 048
     Dates: start: 20091127, end: 20091226
  2. SINGULAIR [Suspect]
     Indication: MIDDLE EAR EFFUSION
     Dosage: 1 TAB Q DAY PO
     Route: 048
     Dates: start: 20091127, end: 20091226

REACTIONS (4)
  - ANXIETY [None]
  - INSOMNIA [None]
  - MOOD ALTERED [None]
  - SLEEP TERROR [None]
